FAERS Safety Report 19569717 (Version 4)
Quarter: 2022Q2

REPORT INFORMATION
  Report Type: Spontaneous
  Country: US (occurrence: US)
  Receive Date: 20210716
  Receipt Date: 20220419
  Transmission Date: 20220721
  Serious: No
  Sender: FDA-Public Use
  Company Number: US-TAKEDA-2021TUS043619

PATIENT
  Age: 70 Year
  Sex: Female

DRUGS (2)
  1. DEXILANT [Suspect]
     Active Substance: DEXLANSOPRAZOLE
     Indication: Gastric disorder
     Dosage: 60 MILLIGRAM, QOD
     Route: 065
  2. DEXILANT [Suspect]
     Active Substance: DEXLANSOPRAZOLE
     Indication: Oesophageal disorder

REACTIONS (2)
  - Incorrect product administration duration [Unknown]
  - No adverse event [Unknown]
